FAERS Safety Report 5362743-5 (Version None)
Quarter: 2007Q2

REPORT INFORMATION
  Report Type: 
  Country: None (occurrence: None)
  Receive Date: 20070619
  Receipt Date: 20070609
  Transmission Date: 20071010
  Serious: Yes (Other)
  Sender: FDA-Public Use
  Company Number: US-PFIZER INC-2007047336

PATIENT
  Sex: Female
  Weight: 60.909 kg

DRUGS (11)
  1. CHANTIX [Suspect]
     Indication: SMOKING CESSATION THERAPY
     Dosage: DAILY DOSE:.5MG
  2. CODEINE SUL TAB [Concomitant]
  3. PREDNISONE TAB [Concomitant]
  4. PLAQUENIL [Concomitant]
  5. WELLBUTRIN [Concomitant]
  6. ZOLOFT [Concomitant]
  7. PROVIGIL [Concomitant]
  8. AVAPRO [Concomitant]
  9. PROTONIX [Concomitant]
  10. SYNTHROID [Concomitant]
  11. ESTRATEST [Concomitant]

REACTIONS (1)
  - PAIN [None]
